FAERS Safety Report 6052414-4 (Version None)
Quarter: 2009Q1

REPORT INFORMATION
  Report Type: 
  Country: None (occurrence: None)
  Receive Date: 20090121
  Receipt Date: 20090108
  Transmission Date: 20090719
  Serious: Yes (Hospitalization)
  Sender: FDA-Public Use
  Company Number: 1-17246493

PATIENT
  Age: 8 Year
  Sex: Male

DRUGS (2)
  1. PREDNISOLONE [Suspect]
     Indication: SARCOIDOSIS
     Dosage: 1 MG/KG/DAY, ORAL
     Route: 048
  2. METHYLPREDNISOLONE [Suspect]
     Indication: LYMPHADENOPATHY
     Dosage: 10MG/KG X1, 5 MG/KG, INTRAVENOUS
     Route: 042

REACTIONS (15)
  - ANAEMIA [None]
  - BONE MARROW DISORDER [None]
  - DYSPNOEA [None]
  - ERYTHEMA [None]
  - FEELING HOT [None]
  - HAEMOGLOBIN DECREASED [None]
  - HYPOXIA [None]
  - INFARCTION [None]
  - LUNG CONSOLIDATION [None]
  - LYMPHADENOPATHY [None]
  - PAIN IN EXTREMITY [None]
  - PERICARDIAL FIBROSIS [None]
  - PLEURAL EFFUSION [None]
  - PULMONARY OEDEMA [None]
  - SICKLE CELL ANAEMIA WITH CRISIS [None]
